FAERS Safety Report 9865765 (Version 1)
Quarter: 2014Q1

REPORT INFORMATION
  Report Type: Spontaneous
  Country: US (occurrence: US)
  Receive Date: 20140203
  Receipt Date: 20140203
  Transmission Date: 20141002
  Serious: No
  Sender: FDA-Public Use
  Company Number: US-ALLERGAN-1309809US

PATIENT
  Age: 61 Year
  Sex: Female

DRUGS (1)
  1. RESTASIS [Suspect]
     Indication: DRY EYE
     Dosage: 2 GTT, BID
     Route: 047
     Dates: start: 20130626, end: 20130701

REACTIONS (11)
  - Throat irritation [Recovered/Resolved]
  - Sinus disorder [Recovered/Resolved]
  - Malaise [Unknown]
  - Oropharyngeal pain [Unknown]
  - Vision blurred [Unknown]
  - Foreign body sensation in eyes [Unknown]
  - Eye pain [Not Recovered/Not Resolved]
  - Eye pain [Not Recovered/Not Resolved]
  - Headache [Unknown]
  - Tongue dry [Unknown]
  - Glossitis [Not Recovered/Not Resolved]
